FAERS Safety Report 10087066 (Version 1)
Quarter: 2014Q2

REPORT INFORMATION
  Report Type: Spontaneous
  Country: BR (occurrence: BR)
  Receive Date: 20140418
  Receipt Date: 20140418
  Transmission Date: 20141212
  Serious: Yes (Hospitalization, Other)
  Sender: FDA-Public Use
  Company Number: BR-ELI_LILLY_AND_COMPANY-BR201404003010

PATIENT
  Sex: Female
  Weight: 55 kg

DRUGS (11)
  1. HUMULIN N [Suspect]
     Indication: DIABETES MELLITUS
     Dosage: 14 IU, EACH MORNING
     Route: 058
  2. HUMULIN N [Suspect]
     Dosage: 18 IU, EACH MORNING
     Route: 058
     Dates: start: 20140403
  3. HUMULIN N [Suspect]
     Dosage: 20 IU, EACH MORNING
     Route: 058
     Dates: start: 20140409
  4. NOVORAPID [Suspect]
     Indication: DIABETES MELLITUS
     Dosage: 2 IU, PRN
     Route: 065
     Dates: start: 20140413
  5. LISINOPRIL [Concomitant]
     Indication: CARDIAC DISORDER
     Dosage: UNK, UNKNOWN
     Route: 065
  6. ENALAPRIL [Concomitant]
     Indication: CARDIAC DISORDER
     Dosage: UNK, UNKNOWN
     Route: 065
  7. MONOCORDIL [Concomitant]
     Indication: CARDIAC DISORDER
     Dosage: UNK, UNKNOWN
     Route: 065
  8. AMLODIPIN                          /00972401/ [Concomitant]
     Indication: CARDIAC DISORDER
     Dosage: UNK, BID
     Route: 065
  9. PANTOPRAZOL [Concomitant]
     Indication: ABDOMINAL PAIN UPPER
     Dosage: UNK, BID
     Route: 065
  10. BISOPROLOL [Concomitant]
     Indication: ABDOMINAL PAIN UPPER
     Dosage: UNK, UNKNOWN
     Route: 065
  11. CLOPIDOGREL [Concomitant]
     Indication: ABDOMINAL PAIN UPPER
     Dosage: UNK, BID
     Route: 065

REACTIONS (12)
  - Cardiac disorder [Unknown]
  - Glaucoma [Unknown]
  - Hypoglycaemia [Unknown]
  - Diarrhoea [Recovering/Resolving]
  - Micturition urgency [Unknown]
  - Blood glucose fluctuation [Not Recovered/Not Resolved]
  - Weight decreased [Unknown]
  - Limb discomfort [Recovered/Resolved]
  - Visual impairment [Unknown]
  - Dry eye [Unknown]
  - Incorrect dose administered [Unknown]
  - Gait disturbance [Unknown]
